FAERS Safety Report 21588518 (Version 4)
Quarter: 2024Q2

REPORT INFORMATION
  Report Type: Other
  Country: DE (occurrence: None)
  Receive Date: 20221114
  Receipt Date: 20240425
  Transmission Date: 20240715
  Serious: Yes (Other)
  Sender: FDA-Public Use
  Company Number: DE-ROCHE-3214795

PATIENT
  Age: 55 Year
  Sex: Male
  Weight: 74 kg

DRUGS (14)
  1. OCREVUS [Suspect]
     Active Substance: OCRELIZUMAB
     Indication: Relapsing multiple sclerosis
     Route: 042
     Dates: start: 20181009, end: 20181023
  2. OCREVUS [Suspect]
     Active Substance: OCRELIZUMAB
     Route: 042
     Dates: start: 20190507, end: 20220215
  3. OCREVUS [Suspect]
     Active Substance: OCRELIZUMAB
     Route: 042
     Dates: start: 20220215, end: 20220215
  4. OCREVUS [Suspect]
     Active Substance: OCRELIZUMAB
     Dosage: MOST RECENT DOSE PRIOR TO AE 15/FEB/2022
     Route: 042
     Dates: start: 201810
  5. METHYLPREDNISOLONE [Concomitant]
     Active Substance: METHYLPREDNISOLONE
     Route: 042
     Dates: start: 20181009, end: 20181011
  6. COVID 19 VACCINE (UNK INGREDIENTS) [Concomitant]
     Indication: COVID-19 prophylaxis
     Dosage: DEFINITION OF THE INTERVAL: AS REQUIRED
     Route: 058
     Dates: start: 20211123
  7. PREDNISOLONE [Concomitant]
     Active Substance: PREDNISOLONE
     Indication: Premedication
     Route: 042
     Dates: start: 20181009, end: 20181023
  8. PANTOPRAZOLE SODIUM [Concomitant]
     Active Substance: PANTOPRAZOLE SODIUM
     Dosage: DEFINITION OF THE INTERVAL: AS REQUIRED
     Route: 048
  9. IBUPROFEN [Concomitant]
     Active Substance: IBUPROFEN
     Indication: Pain
     Route: 048
     Dates: start: 20221011
  10. VALPROATE SODIUM [Concomitant]
     Active Substance: VALPROATE SODIUM
     Indication: Seizure prophylaxis
     Route: 048
     Dates: start: 2011
  11. ZOPICLONE [Concomitant]
     Active Substance: ZOPICLONE
     Dosage: DEFINITION OF THE INTERVAL: AS REQUIRED
     Route: 048
  12. DIMETINDENMALEAT [Concomitant]
     Indication: Premedication
     Route: 042
     Dates: start: 20181009, end: 20181023
  13. CALCIVIT D [Concomitant]
     Dosage: DEFINITION OF THE INTERVAL: AS REQUIRED
     Route: 048
  14. ACETAMINOPHEN [Concomitant]
     Active Substance: ACETAMINOPHEN
     Indication: Premedication
     Route: 048
     Dates: start: 20181009, end: 20181023

REACTIONS (2)
  - Pyelonephritis [Recovered/Resolved]
  - Urinary tract infection [Recovered/Resolved]

NARRATIVE: CASE EVENT DATE: 20220527
